FAERS Safety Report 4639846-3 (Version None)
Quarter: 2005Q2

REPORT INFORMATION
  Report Type: 
  Country: None (occurrence: None)
  Receive Date: 20050415
  Receipt Date: 20050415
  Transmission Date: 20051028
  Serious: Yes (Hospitalization)
  Sender: FDA-Public Use
  Company Number: None

PATIENT
  Sex: Female

DRUGS (2)
  1. EFALIZUMAB [Suspect]
     Indication: THROMBOCYTOPENIA
     Dosage: MG SC
     Route: 058
  2. RAPTIVA [Concomitant]

REACTIONS (1)
  - THROMBOCYTOPENIA [None]
